FAERS Safety Report 7199468-X (Version None)
Quarter: 2010Q4

REPORT INFORMATION
  Report Type: 
  Country: None (occurrence: None)
  Receive Date: 20101228
  Receipt Date: 20101214
  Transmission Date: 20110411
  Serious: Yes (Other)
  Sender: FDA-Public Use
  Company Number: PHHY2010US72563

PATIENT
  Sex: Female

DRUGS (1)
  1. FEMARA [Suspect]
     Indication: BREAST CANCER
     Dosage: 2.5 MG, QD
     Route: 048
     Dates: start: 20080201

REACTIONS (5)
  - CLAVICLE FRACTURE [None]
  - CONCUSSION [None]
  - CONTUSION [None]
  - FALL [None]
  - HYPERSENSITIVITY [None]
